FAERS Safety Report 24370069 (Version 1)
Quarter: 2024Q3

REPORT INFORMATION
  Report Type: Report from Study
  Country: US (occurrence: US)
  Receive Date: 20240927
  Receipt Date: 20240927
  Transmission Date: 20241017
  Serious: No
  Sender: ROCHE
  Company Number: US-ROCHE-3538795

PATIENT
  Age: 74 Year
  Sex: Female

DRUGS (1)
  1. LUCENTIS [Suspect]
     Active Substance: RANIBIZUMAB
     Indication: Diabetic eye disease
     Dosage: INJECT 0.05ML VIA INTRAVITREAL ADMINISTRATION, ONCE FOR 1 DOSE, MONTHLY FOR BOTH EYES, LAST DATE: 25
     Route: 050
     Dates: start: 20230927

REACTIONS (2)
  - Off label use [Unknown]
  - No adverse event [Unknown]
